FAERS Safety Report 18561261 (Version 3)
Quarter: 2021Q3

REPORT INFORMATION
  Report Type: Report from Study
  Country: DE (occurrence: DE)
  Receive Date: 20201130
  Receipt Date: 20210706
  Transmission Date: 20211014
  Serious: Yes (Hospitalization, Other)
  Sender: FDA-Public Use
  Company Number: DE-SHIRE-DE202016021AA

PATIENT
  Age: 69 Year
  Sex: Female

DRUGS (8)
  1. VON WILLEBRAND FACTOR [Suspect]
     Active Substance: VON WILLEBRAND FACTOR HUMAN
     Dosage: 3900 TO 5200 IU
     Route: 042
     Dates: start: 20200509
  2. VON WILLEBRAND FACTOR [Suspect]
     Active Substance: VON WILLEBRAND FACTOR HUMAN
     Dosage: 5200/3900  IU
     Route: 042
     Dates: start: 20200729, end: 20200729
  3. VON WILLEBRAND FACTOR [Suspect]
     Active Substance: VON WILLEBRAND FACTOR HUMAN
     Dosage: 1300 INTERNATIONAL UNIT
     Route: 042
  4. DULAGLUTIDE. [Concomitant]
     Active Substance: DULAGLUTIDE
     Indication: DIABETES MELLITUS
     Route: 065
  5. VON WILLEBRAND FACTOR [Suspect]
     Active Substance: VON WILLEBRAND FACTOR HUMAN
     Indication: VON WILLEBRAND^S DISEASE
     Dosage: 5200 INTERNATIONAL UNIT, 1/WEEK
     Route: 042
     Dates: start: 20200518
  6. VON WILLEBRAND FACTOR [Suspect]
     Active Substance: VON WILLEBRAND FACTOR HUMAN
     Dosage: 5200/3900  IU
     Route: 042
     Dates: start: 20200724, end: 20200724
  7. VON WILLEBRAND FACTOR [Suspect]
     Active Substance: VON WILLEBRAND FACTOR HUMAN
     Dosage: 5200 TO 3900 INTERNATIONAL UNIT,
     Route: 042
     Dates: start: 20201106, end: 20201106
  8. METFORMIN [Concomitant]
     Active Substance: METFORMIN HYDROCHLORIDE
     Indication: TYPE 2 DIABETES MELLITUS
     Route: 065

REACTIONS (8)
  - Atrial fibrillation [Unknown]
  - General physical health deterioration [Recovered/Resolved]
  - Melaena [Recovered/Resolved]
  - Eye disorder [Recovered/Resolved]
  - Gastrointestinal haemorrhage [Unknown]
  - Eye haemorrhage [Recovering/Resolving]
  - Haemoglobin decreased [Recovered/Resolved]
  - Ocular hyperaemia [Recovered/Resolved]

NARRATIVE: CASE EVENT DATE: 20200510
